FAERS Safety Report 5404155-1 (Version None)
Quarter: 2007Q3

REPORT INFORMATION
  Report Type: 
  Country: None (occurrence: None)
  Receive Date: 20070802
  Receipt Date: 20070730
  Transmission Date: 20080115
  Serious: Yes (Life-Threatening)
  Sender: FDA-Public Use
  Company Number: PT-MERCK-0707PRT00003

PATIENT
  Age: 36 Year
  Sex: Female
  Weight: 54 kg

DRUGS (5)
  1. PRIMAXIN [Suspect]
     Indication: FEBRILE NEUTROPENIA
     Route: 042
     Dates: start: 20070705, end: 20070705
  2. VINCRISTINE SULFATE [Concomitant]
     Indication: ACUTE LYMPHOCYTIC LEUKAEMIA
     Route: 042
     Dates: end: 20070706
  3. CYCLOPHOSPHAMIDE [Concomitant]
     Indication: ACUTE LYMPHOCYTIC LEUKAEMIA
     Route: 042
     Dates: start: 20070626, end: 20070628
  4. MESNA [Concomitant]
     Route: 042
     Dates: start: 20070626, end: 20070628
  5. DOXORUBICIN [Concomitant]
     Indication: ACUTE LYMPHOCYTIC LEUKAEMIA
     Route: 042
     Dates: start: 20070629, end: 20070629

REACTIONS (4)
  - CONDITION AGGRAVATED [None]
  - HYPERTHERMIA [None]
  - MYOCLONUS [None]
  - TREMOR [None]
